FAERS Safety Report 26014713 (Version 1)
Quarter: 2025Q4

REPORT INFORMATION
  Report Type: Spontaneous
  Country: EU (occurrence: EU)
  Receive Date: 20251108
  Receipt Date: 20251108
  Transmission Date: 20260118
  Serious: Yes (Disabling)
  Sender: ACCORD
  Company Number: EU-MLMSERVICE-20251023-PI681441-00218-3

PATIENT
  Age: 4 Decade
  Sex: Male

DRUGS (10)
  1. METHOTREXATE [Suspect]
     Active Substance: METHOTREXATE
     Indication: Borderline leprosy
  2. THALIDOMIDE [Concomitant]
     Active Substance: THALIDOMIDE
     Indication: Borderline leprosy
     Dosage: 24 MONTHS
  3. CLARITHROMYCIN [Concomitant]
     Active Substance: CLARITHROMYCIN
     Indication: Leprosy
  4. MINOCYCLINE [Concomitant]
     Active Substance: MINOCYCLINE HYDROCHLORIDE
     Indication: Leprosy
  5. PREDNISONE [Concomitant]
     Active Substance: PREDNISONE
     Indication: Acute febrile neutrophilic dermatosis
     Dosage: 27 MONTHS
     Route: 048
  6. CLOFAZIMINE [Concomitant]
     Active Substance: CLOFAZIMINE
     Indication: Borderline leprosy
  7. PREDNISONE [Concomitant]
     Active Substance: PREDNISONE
     Indication: Type 2 lepra reaction
     Dosage: 27 MONTHS
     Route: 048
  8. METHOTREXATE [Suspect]
     Active Substance: METHOTREXATE
     Indication: Borderline leprosy
     Dosage: 7.5 TO 15MG PER WEEK IN ASCENDING DOSE
  9. PREDNISONE [Concomitant]
     Active Substance: PREDNISONE
     Indication: Acute febrile neutrophilic dermatosis
     Dosage: VARIABLE DOSES RANGING FROM 5 TO 50MG
     Route: 048
  10. PREDNISONE [Concomitant]
     Active Substance: PREDNISONE
     Indication: Borderline leprosy
     Dosage: 27 MONTHS
     Route: 048

REACTIONS (3)
  - Arthralgia [Recovered/Resolved]
  - Pain in extremity [Recovered/Resolved]
  - Off label use [Unknown]
